FAERS Safety Report 21020260 (Version 1)
Quarter: 2022Q2

REPORT INFORMATION
  Report Type: Spontaneous
  Country: CN (occurrence: None)
  Receive Date: 20220628
  Receipt Date: 20220628
  Transmission Date: 20220721
  Serious: Yes (Other)
  Sender: FDA-Public Use
  Company Number: 2022A231177

PATIENT
  Age: 53 Year
  Sex: Male

DRUGS (1)
  1. ROSUVASTATIN [Suspect]
     Active Substance: ROSUVASTATIN
     Indication: Lipids increased
     Route: 048
     Dates: start: 20220527, end: 20220610

REACTIONS (11)
  - Electrolyte imbalance [Unknown]
  - Gamma-glutamyltransferase increased [Unknown]
  - Blood bilirubin unconjugated increased [Unknown]
  - Bilirubin conjugated increased [Unknown]
  - Renal impairment [Unknown]
  - Blood alkaline phosphatase increased [Unknown]
  - Hepatic function abnormal [Recovering/Resolving]
  - Transaminases increased [Unknown]
  - Aspartate aminotransferase increased [Unknown]
  - Alanine aminotransferase increased [Unknown]
  - Blood bilirubin increased [Unknown]

NARRATIVE: CASE EVENT DATE: 20220611
